FAERS Safety Report 6935724-5 (Version None)
Quarter: 2010Q3

REPORT INFORMATION
  Report Type: 
  Country: None (occurrence: None)
  Receive Date: 20100823
  Receipt Date: 20100811
  Transmission Date: 20110219
  Serious: Yes (Hospitalization)
  Sender: FDA-Public Use
  Company Number: US-CELGENEUS-163-21880-10080946

PATIENT
  Sex: Female

DRUGS (3)
  1. REVLIMID [Suspect]
     Indication: MULTIPLE MYELOMA
     Route: 048
     Dates: start: 20060801
  2. REVLIMID [Suspect]
     Dosage: 15-5MG
     Route: 048
     Dates: start: 20061101
  3. REVLIMID [Suspect]
     Route: 048
     Dates: start: 20070201

REACTIONS (3)
  - BLADDER PROLAPSE [None]
  - FULL BLOOD COUNT DECREASED [None]
  - PNEUMONIA [None]
